FAERS Safety Report 7473196-5 (Version None)
Quarter: 2011Q2

REPORT INFORMATION
  Report Type: 
  Country: None (occurrence: None)
  Receive Date: 20110511
  Receipt Date: 20110506
  Transmission Date: 20111010
  Serious: Yes (Other)
  Sender: FDA-Public Use
  Company Number: A0923264A

PATIENT
  Sex: Female
  Weight: 59.1 kg

DRUGS (2)
  1. VENTOLIN [Concomitant]
  2. ADVAIR DISKUS 100/50 [Suspect]
     Indication: ASTHMA
     Route: 055
     Dates: start: 19970101

REACTIONS (5)
  - DYSPNOEA [None]
  - PRODUCT QUALITY ISSUE [None]
  - ASTHMA [None]
  - COUGH [None]
  - CHEST DISCOMFORT [None]
